FAERS Safety Report 24989076 (Version 2)
Quarter: 2025Q1

REPORT INFORMATION
  Report Type: Spontaneous
  Country: GB (occurrence: GB)
  Receive Date: 20250220
  Receipt Date: 20250307
  Transmission Date: 20250409
  Serious: Yes (Other)
  Sender: TEVA
  Company Number: GB-TEVA-VS-3299357

PATIENT
  Age: 70 Year
  Sex: Female

DRUGS (21)
  1. PREDNISOLONE [Suspect]
     Active Substance: PREDNISOLONE
     Indication: Episcleritis
     Route: 048
  2. CYCLOPHOSPHAMIDE [Suspect]
     Active Substance: CYCLOPHOSPHAMIDE
     Indication: Neuroendocrine tumour of the lung metastatic
     Route: 065
  3. HYALURONATE SODIUM [Suspect]
     Active Substance: HYALURONATE SODIUM
     Indication: Episcleritis
     Route: 047
  4. BIMATOPROST [Concomitant]
     Active Substance: BIMATOPROST
     Indication: Episcleritis
     Route: 047
  5. CARBOPLATIN [Concomitant]
     Active Substance: CARBOPLATIN
     Indication: Neuroendocrine tumour of the lung metastatic
     Route: 065
  6. DORZOLAMIDE\TIMOLOL [Suspect]
     Active Substance: DORZOLAMIDE\TIMOLOL
     Indication: Ocular cancer metastatic
     Route: 047
  7. ETOPOSIDE [Concomitant]
     Active Substance: ETOPOSIDE
     Indication: Neuroendocrine tumour of the lung metastatic
     Route: 065
  8. BRIMONIDINE TARTRATE [Concomitant]
     Active Substance: BRIMONIDINE TARTRATE
     Indication: Ocular cancer metastatic
     Dosage: EYE DROPS, RECEIVED 2-MG/ML
     Route: 047
  9. VINCRISTINE [Suspect]
     Active Substance: VINCRISTINE
     Indication: Neuroendocrine tumour of the lung metastatic
     Route: 065
  10. TIMOLOL MALEATE [Concomitant]
     Active Substance: TIMOLOL MALEATE
     Indication: Episcleritis
     Dosage: EYE DROPS, RECEIVED 5MG/ML
     Route: 047
  11. Hyloforte [Concomitant]
     Indication: Episcleritis
     Route: 065
  12. VITAMIN A PALMITATE [Suspect]
     Active Substance: VITAMIN A PALMITATE
     Indication: Ocular cancer metastatic
     Dosage: EYE OINTMENT, ONCE AT NIGHT
     Route: 047
  13. LATANOPROST [Concomitant]
     Active Substance: LATANOPROST
     Indication: Ocular cancer metastatic
     Dosage: EYE DROPS
     Route: 047
  14. CYCLOPENTOLATE [Suspect]
     Active Substance: CYCLOPENTOLATE
     Indication: Ocular cancer metastatic
     Route: 061
  15. DOXORUBICIN [Suspect]
     Active Substance: DOXORUBICIN
     Indication: Neuroendocrine tumour of the lung metastatic
     Route: 065
  16. DEXAMETHASONE [Suspect]
     Active Substance: DEXAMETHASONE
     Indication: Episcleritis
     Dosage: EYE DROPS, FOR 1-WEEK
     Route: 047
  17. DEXAMETHASONE [Suspect]
     Active Substance: DEXAMETHASONE
     Indication: Episcleritis
     Dosage: EYE DROPS, FOR 1-WEEK
     Route: 047
  18. DEXAMETHASONE [Suspect]
     Active Substance: DEXAMETHASONE
     Indication: Episcleritis
     Dosage: EYE DROPS, RECEIVED 3-TIMES A DAY FOR 1-WEEK
     Route: 047
  19. DEXAMETHASONE [Suspect]
     Active Substance: DEXAMETHASONE
     Indication: Episcleritis
     Dosage: EYE DROPS
     Route: 047
  20. ACETAZOLAMIDE [Concomitant]
     Active Substance: ACETAZOLAMIDE
     Indication: Episcleritis
     Dosage: SOLUTION
     Route: 047
  21. ACETAZOLAMIDE [Concomitant]
     Active Substance: ACETAZOLAMIDE
     Indication: Episcleritis
     Route: 048

REACTIONS (3)
  - Gastrointestinal disorder [Unknown]
  - Drug ineffective [Unknown]
  - Neuropathy peripheral [Unknown]
